FAERS Safety Report 9062773 (Version 1)
Quarter: 2013Q1

REPORT INFORMATION
  Report Type: Spontaneous
  Country: US (occurrence: US)
  Receive Date: 20130129
  Receipt Date: 20130129
  Transmission Date: 20140127
  Serious: No
  Sender: FDA-Public Use
  Company Number: US-ABBOTT-12P-163-0946741-00

PATIENT
  Sex: Male

DRUGS (3)
  1. HUMIRA 40 MG/0.8 ML PEN [Suspect]
     Indication: PSORIASIS
     Dates: start: 201112
  2. CYCLOSPORINE [Suspect]
     Indication: PSORIASIS
     Dates: start: 201108, end: 201202
  3. CYCLOSPORINE [Suspect]
     Dates: start: 201204, end: 201205

REACTIONS (1)
  - Anogenital warts [Recovered/Resolved]
